FAERS Safety Report 4305872-7 (Version None)
Quarter: 2004Q1

REPORT INFORMATION
  Report Type: 
  Country: None (occurrence: None)
  Receive Date: 20040225
  Receipt Date: 20040209
  Transmission Date: 20041129
  Serious: Yes (Disabling, Other)
  Sender: FDA-Public Use
  Company Number: 2004-DE-00656GD

PATIENT
  Sex: Male

DRUGS (2)
  1. PREDNISONE [Suspect]
     Indication: SARCOIDOSIS
     Dates: start: 19920501
  2. METHOTREXATE [Suspect]
     Indication: SARCOIDOSIS
     Dosage: 7.5 MG (, WEEKLY),
     Dates: start: 19960101

REACTIONS (13)
  - ACUTE RESPIRATORY DISTRESS SYNDROME [None]
  - ASEPTIC NECROSIS BONE [None]
  - DEHYDRATION [None]
  - DERMATITIS ALLERGIC [None]
  - DISEASE RECURRENCE [None]
  - DRUG INEFFECTIVE [None]
  - DUODENITIS [None]
  - IMPAIRED HEALING [None]
  - LEG AMPUTATION [None]
  - PANCREATIC PHLEGMON [None]
  - PANCREATITIS ACUTE [None]
  - PANCREATITIS NECROTISING [None]
  - SARCOIDOSIS [None]
